FAERS Safety Report 15675206 (Version 1)
Quarter: 2018Q4

REPORT INFORMATION
  Report Type: Spontaneous
  Country: IT (occurrence: IT)
  Receive Date: 20181130
  Receipt Date: 20181130
  Transmission Date: 20190205
  Serious: Yes (Other)
  Sender: FDA-Public Use
  Company Number: IT-CPL-000779

PATIENT
  Age: 62 Year
  Sex: Male

DRUGS (3)
  1. ACICLOVIR [Suspect]
     Active Substance: ACYCLOVIR
     Indication: HERPES VIRUS INFECTION
     Dosage: 1200 MG/DAY, FOR 7 DAYS
     Route: 048
  2. BENDAMUSTINE/BENDAMUSTINE HYDROCHLORIDE [Concomitant]
  3. RITUXIMAB. [Concomitant]
     Active Substance: RITUXIMAB

REACTIONS (1)
  - Type IV hypersensitivity reaction [Recovering/Resolving]
